FAERS Safety Report 14940409 (Version 3)
Quarter: 2018Q3

REPORT INFORMATION
  Report Type: Spontaneous
  Country: GB (occurrence: GB)
  Receive Date: 20180525
  Receipt Date: 20180810
  Transmission Date: 20181010
  Serious: Yes (Hospitalization, Other)
  Sender: FDA-Public Use
  Company Number: GB-BRISTOL-MYERS SQUIBB COMPANY-BMS-2018-046501

PATIENT
  Age: 61 Year
  Sex: Male

DRUGS (1)
  1. NIVOLUMAB [Suspect]
     Active Substance: NIVOLUMAB
     Indication: RENAL CANCER METASTATIC
     Dosage: 230 MG, UNK
     Route: 065
     Dates: start: 201705

REACTIONS (6)
  - Immune-mediated hepatitis [Unknown]
  - Cholecystitis acute [Unknown]
  - Jaundice cholestatic [Unknown]
  - Malignant neoplasm progression [Unknown]
  - Pleural effusion [Unknown]
  - Lymphangitis [Unknown]

NARRATIVE: CASE EVENT DATE: 20180126
